FAERS Safety Report 5072295-5 (Version None)
Quarter: 2006Q3

REPORT INFORMATION
  Report Type: 
  Country: None (occurrence: None)
  Receive Date: 20060801
  Receipt Date: 20060724
  Transmission Date: 20061208
  Serious: Yes (Other)
  Sender: FDA-Public Use
  Company Number: 200614798BWH

PATIENT

DRUGS (1)
  1. AVELOX [Suspect]
     Indication: RESPIRATORY TRACT INFECTION
     Dosage: ORAL
     Route: 048

REACTIONS (2)
  - DIZZINESS [None]
  - NERVOUS SYSTEM DISORDER [None]
